FAERS Safety Report 9414161 (Version 1)
Quarter: 2013Q3

REPORT INFORMATION
  Report Type: Spontaneous
  Country: AU (occurrence: AU)
  Receive Date: 20130723
  Receipt Date: 20130723
  Transmission Date: 20140515
  Serious: Yes (Other)
  Sender: FDA-Public Use
  Company Number: AU-MYLANLABS-2013S1015824

PATIENT
  Age: 64 Year
  Sex: Female

DRUGS (5)
  1. DIGOXIN [Suspect]
     Indication: CARDIOMYOPATHY
     Dosage: 0.5MG OVER 30MIN; THEN REPEATED 5H LATER (1MG TOTAL)
     Route: 042
  2. EPINEPHRINE [Interacting]
     Indication: SINUS TACHYCARDIA
     Route: 065
  3. AMIODARONE [Interacting]
     Indication: CARDIOVERSION
     Dosage: 1200MG OVER 24 HOURS
     Route: 042
  4. ERYTHROMYCIN [Interacting]
     Dosage: 100MG
     Route: 042
  5. ESOMEPRAZOLE [Concomitant]
     Dosage: 40MG
     Route: 065

REACTIONS (4)
  - Bradyarrhythmia [Recovering/Resolving]
  - Hyperkalaemia [Recovering/Resolving]
  - Toxicity to various agents [Recovering/Resolving]
  - Drug interaction [Recovering/Resolving]
